FAERS Safety Report 7388071-4 (Version None)
Quarter: 2011Q2

REPORT INFORMATION
  Report Type: 
  Country: None (occurrence: None)
  Receive Date: 20110401
  Receipt Date: 20110328
  Transmission Date: 20111010
  Serious: No
  Sender: FDA-Public Use
  Company Number: US-PFIZER INC-2011032745

PATIENT
  Sex: Female
  Weight: 61.224 kg

DRUGS (3)
  1. BENICAR [Suspect]
     Dosage: UNK
  2. TOVIAZ [Suspect]
     Indication: URINARY TRACT DISORDER
     Dosage: 4 MG, UNK
     Dates: end: 20110214
  3. ACETYLSALICYLIC ACID [Concomitant]
     Indication: CARDIAC DISORDER
     Dosage: 325 MG, 1X/DAY

REACTIONS (2)
  - FATIGUE [None]
  - SOMNOLENCE [None]
